FAERS Safety Report 13644068 (Version 1)
Quarter: 2017Q2

REPORT INFORMATION
  Report Type: Spontaneous
  Country: FR (occurrence: FR)
  Receive Date: 20170612
  Receipt Date: 20170612
  Transmission Date: 20170830
  Serious: Yes (Other)
  Sender: FDA-Public Use
  Company Number: FR-BAYER-2017-109956

PATIENT
  Age: 27 Year
  Sex: Female

DRUGS (1)
  1. MIRENA [Suspect]
     Active Substance: LEVONORGESTREL
     Indication: CONTRACEPTION
     Dosage: 20 MCG/24HR, CONT
     Route: 015
     Dates: start: 20090601, end: 20150416

REACTIONS (9)
  - Fatigue [Unknown]
  - Hypertrichosis [Unknown]
  - Arthralgia [Unknown]
  - Toothache [Unknown]
  - Stress [Unknown]
  - Anxiety [Unknown]
  - Depression [Unknown]
  - Cholangitis sclerosing [Unknown]
  - Alopecia [Unknown]

NARRATIVE: CASE EVENT DATE: 2010
